FAERS Safety Report 19487863 (Version 2)
Quarter: 2021Q3

REPORT INFORMATION
  Report Type: Report from Study
  Country: US (occurrence: US)
  Receive Date: 20210702
  Receipt Date: 20210921
  Transmission Date: 20211014
  Serious: No
  Sender: FDA-Public Use
  Company Number: US-INCYTE CORPORATION-2020IN004739

PATIENT

DRUGS (29)
  1. TRAMADOL. [Concomitant]
     Active Substance: TRAMADOL
     Indication: HEADACHE
     Dosage: 1 TABLET, PRN
     Route: 065
     Dates: start: 20140828
  2. SIMVASTATIN. [Concomitant]
     Active Substance: SIMVASTATIN
     Indication: HYPERLIPIDAEMIA
     Dosage: 40 MILLIGRAM, QD
     Route: 065
     Dates: start: 20180802, end: 20201105
  3. PIOGLITAZONE. [Concomitant]
     Active Substance: PIOGLITAZONE
     Indication: DIABETES MELLITUS
     Dosage: 15 MILLIGRAM, QD
     Route: 065
     Dates: start: 20180802
  4. HYDREA [Concomitant]
     Active Substance: HYDROXYUREA
     Dosage: 1000 MEQ/UL, UNK
     Route: 065
     Dates: start: 20191124, end: 20200207
  5. CHLORHEXIDINE [Concomitant]
     Active Substance: CHLORHEXIDINE
     Indication: STOMATITIS
     Dosage: 15 MILLILITER, PRN
     Route: 065
     Dates: start: 20190823
  6. THIAMINE. [Concomitant]
     Active Substance: THIAMINE
     Indication: SUPPLEMENTATION THERAPY
     Dosage: 100 MILLIGRAM, QD
     Route: 065
     Dates: start: 20201105
  7. ROPINIROLE. [Concomitant]
     Active Substance: ROPINIROLE
     Indication: CHRONIC KIDNEY DISEASE
     Dosage: 0.5 MILLIGRAM, QD
     Route: 065
     Dates: start: 20160823
  8. RAMIPRIL. [Concomitant]
     Active Substance: RAMIPRIL
     Indication: TACHYCARDIA
     Dosage: 5 MILLIGRAM, QOD
     Route: 065
     Dates: start: 20170223, end: 20171220
  9. LEVOTHYROXINE. [Concomitant]
     Active Substance: LEVOTHYROXINE
     Dosage: 50 MICROGRAM, QD
     Route: 065
     Dates: start: 20170727
  10. HYDREA [Concomitant]
     Active Substance: HYDROXYUREA
     Dosage: 500 MILLIGRAM, UNK
     Route: 065
     Dates: start: 20170701, end: 20171219
  11. JAKAFI [Suspect]
     Active Substance: RUXOLITINIB
     Indication: ESSENTIAL THROMBOCYTHAEMIA
     Dosage: 10 MILLIGRAM, BID
     Route: 065
     Dates: start: 20191220, end: 20201105
  12. RAMIPRIL. [Concomitant]
     Active Substance: RAMIPRIL
     Dosage: 2.5 MILLIGRAM, QD
     Route: 065
     Dates: start: 20171221
  13. HYDREA [Concomitant]
     Active Substance: HYDROXYUREA
     Dosage: 500 MILLIGRAM, UNK
     Route: 065
     Dates: start: 20180503, end: 20191122
  14. HYDREA [Concomitant]
     Active Substance: HYDROXYUREA
     Dosage: 500 MILLIGRAM, UNK
     Route: 065
     Dates: start: 20170630, end: 20171220
  15. BENADRYL [Concomitant]
     Active Substance: DIPHENHYDRAMINE HYDROCHLORIDE
     Indication: HYPERSENSITIVITY
     Dosage: 25 MILLIGRAM, PRN
     Route: 065
     Dates: start: 20200715
  16. LEVOTHYROXINE. [Concomitant]
     Active Substance: LEVOTHYROXINE
     Indication: HYPOTHYROIDISM
     Dosage: 75 MICROGRAM, QD
     Route: 065
     Dates: start: 20140326, end: 20170726
  17. HYDREA [Concomitant]
     Active Substance: HYDROXYUREA
     Dosage: 500 MILLIGRAM, QD
     Route: 065
     Dates: start: 20171221, end: 20180319
  18. HYDREA [Concomitant]
     Active Substance: HYDROXYUREA
     Dosage: 500 MILLIGRAM, UNK
     Route: 065
     Dates: start: 20180320, end: 20180502
  19. HYDREA [Concomitant]
     Active Substance: HYDROXYUREA
     Dosage: 500 MILLIGRAM, UNK
     Route: 065
     Dates: start: 20191123, end: 20200207
  20. FLUAD NOS [Concomitant]
     Active Substance: INFLUENZA VIRUS VACCINE
     Indication: INFECTION PROPHYLAXIS
     Dosage: 0.5 MILLILITER
     Route: 065
     Dates: start: 20201015, end: 20201015
  21. METOPROLOL. [Concomitant]
     Active Substance: METOPROLOL
     Indication: HYPERTENSION
     Dosage: 50 MILLIGRAM, QD
     Route: 065
     Dates: start: 20180802
  22. HYDREA [Concomitant]
     Active Substance: HYDROXYUREA
     Dosage: 750 MILLIGRAM, UNK
     Route: 065
     Dates: start: 20180504, end: 20191122
  23. HYDREA [Concomitant]
     Active Substance: HYDROXYUREA
     Dosage: 500 MILLIGRAM
     Route: 065
     Dates: start: 20210412
  24. FEDRATINIB [Concomitant]
     Active Substance: FEDRATINIB
     Indication: ESSENTIAL THROMBOCYTHAEMIA
     Dosage: 200 MILLIGRAM, QD
     Route: 065
     Dates: start: 20201105
  25. ASPIRIN [ACETYLSALICYLIC ACID] [Concomitant]
     Active Substance: ASPIRIN
     Indication: THROMBOSIS PROPHYLAXIS
     Dosage: 81 MILLIGRAM, QD
     Route: 065
     Dates: start: 20170223
  26. ACETAMINOPHEN. [Concomitant]
     Active Substance: ACETAMINOPHEN
     Indication: PYREXIA
     Dosage: 650 MILLIGRAM, PRN
     Route: 065
     Dates: start: 20200715
  27. VALACYCLOVIR [Concomitant]
     Active Substance: VALACYCLOVIR HYDROCHLORIDE
     Indication: INFECTION PROPHYLAXIS
     Dosage: 500 MILLIGRAM, BID
     Route: 065
     Dates: start: 20200910
  28. HYDREA [Concomitant]
     Active Substance: HYDROXYUREA
     Indication: ESSENTIAL THROMBOCYTHAEMIA
     Dosage: 500 MILLIGRAM, BID
     Route: 065
     Dates: start: 20170323, end: 20190629
  29. HYDREA [Concomitant]
     Active Substance: HYDROXYUREA
     Dosage: 500 MILLIGRAM, UNK
     Route: 065
     Dates: start: 20180324, end: 20180502

REACTIONS (8)
  - Pruritus [Recovered/Resolved]
  - Anaemia [Not Recovered/Not Resolved]
  - Herpes zoster [Recovered/Resolved]
  - Anaemia [Recovered/Resolved]
  - Anaemia [Not Recovered/Not Resolved]
  - Dizziness [Recovered/Resolved]
  - Bronchitis [Recovered/Resolved]
  - Anaemia [Not Recovered/Not Resolved]

NARRATIVE: CASE EVENT DATE: 202002
